FAERS Safety Report 16752549 (Version 6)
Quarter: 2020Q2

REPORT INFORMATION
  Report Type: Spontaneous
  Country: US (occurrence: US)
  Receive Date: 20190828
  Receipt Date: 20200519
  Transmission Date: 20200713
  Serious: Yes (Death, Hospitalization, Other)
  Sender: FDA-Public Use
  Company Number: US-BIOMARINAP-US-2019-125438

PATIENT
  Age: 1 Year
  Sex: Male

DRUGS (1)
  1. ALDURAZYME [Suspect]
     Active Substance: LARONIDASE
     Indication: MUCOPOLYSACCHARIDOSIS I
     Dosage: 6.7 MILLIGRAM, QW
     Route: 041
     Dates: start: 20190816, end: 20191204

REACTIONS (9)
  - End stage renal disease [Recovering/Resolving]
  - Gastrointestinal disorder [Not Recovered/Not Resolved]
  - Complications of bone marrow transplant [Unknown]
  - Thrombotic microangiopathy [Recovering/Resolving]
  - Death [Fatal]
  - Blood pressure increased [Recovered/Resolved]
  - Bone marrow transplant [Not Recovered/Not Resolved]
  - Pain [Not Recovered/Not Resolved]
  - Gallbladder disorder [Recovering/Resolving]

NARRATIVE: CASE EVENT DATE: 20190816
